FAERS Safety Report 11616132 (Version 2)
Quarter: 2015Q4

REPORT INFORMATION
  Report Type: Spontaneous
  Country: US (occurrence: US)
  Receive Date: 20151009
  Receipt Date: 20151228
  Transmission Date: 20160304
  Serious: Yes (Hospitalization, Disabling)
  Sender: FDA-Public Use
  Company Number: US-ENDO PHARMACEUTICALS INC.-2015-003235

PATIENT
  Age: 57 Year
  Sex: Male
  Weight: 118.04 kg

DRUGS (1)
  1. FORTESTA [Suspect]
     Active Substance: TESTOSTERONE
     Indication: ANDROGEN REPLACEMENT THERAPY
     Dosage: 10 MILLIGRAMS DAILY
     Route: 061
     Dates: start: 20130225, end: 20131124

REACTIONS (5)
  - Epistaxis [Unknown]
  - Pulmonary infarction [Not Recovered/Not Resolved]
  - Type 2 diabetes mellitus [Unknown]
  - Pulmonary embolism [Not Recovered/Not Resolved]
  - Deep vein thrombosis [Not Recovered/Not Resolved]

NARRATIVE: CASE EVENT DATE: 20131124
